FAERS Safety Report 9734795 (Version 2)
Quarter: 2013Q4

REPORT INFORMATION
  Report Type: Report from Study
  Country: US (occurrence: US)
  Receive Date: 20131206
  Receipt Date: 20131206
  Transmission Date: 20140711
  Serious: Yes (Other)
  Sender: FDA-Public Use
  Company Number: US-ROCHE-686757

PATIENT
  Sex: 0

DRUGS (3)
  1. BEVACIZUMAB [Suspect]
     Indication: HEPATOBILIARY CANCER
     Dosage: ON DAYS 1 AND 15 EVERY 28 DAYS
     Route: 042
  2. GEMCITABINE [Suspect]
     Indication: HEPATOBILIARY CANCER
     Dosage: ON DAYS 1 AND 15 EVERY 28 DAYS, 10MG/M2 PER MINUTE
     Route: 042
  3. OXALIPLATIN [Suspect]
     Indication: HEPATOBILIARY CANCER
     Dosage: 2 HOUR INFUSION; ON DAYS 1 AND 15 EVERY 28 DAYS
     Route: 042

REACTIONS (27)
  - Hypertension [Unknown]
  - Proteinuria [Unknown]
  - Thrombosis [Unknown]
  - Myocardial ischaemia [Unknown]
  - Thrombocytopenia [Unknown]
  - Leukopenia [Unknown]
  - Neutropenia [Unknown]
  - Anaemia [Unknown]
  - Lymphopenia [Unknown]
  - Febrile neutropenia [Unknown]
  - Fatigue [Unknown]
  - Neuropathy peripheral [Unknown]
  - Aspartate aminotransferase increased [Unknown]
  - Nausea [Unknown]
  - Alanine aminotransferase increased [Unknown]
  - Constipation [Unknown]
  - Decreased appetite [Unknown]
  - Blood alkaline phosphatase increased [Unknown]
  - Vomiting [Unknown]
  - Diarrhoea [Unknown]
  - Hypoalbuminaemia [Unknown]
  - Weight decreased [Unknown]
  - Abdominal pain [Unknown]
  - Dyspnoea [Unknown]
  - Hyperglycaemia [Unknown]
  - Hypersensitivity [Unknown]
  - Hypokalaemia [Unknown]
